FAERS Safety Report 6925161-1 (Version None)
Quarter: 2010Q3

REPORT INFORMATION
  Report Type: 
  Country: None (occurrence: None)
  Receive Date: 20100816
  Receipt Date: 20100811
  Transmission Date: 20110219
  Serious: Yes (Other)
  Sender: FDA-Public Use
  Company Number: US-PFIZER INC-2010101449

PATIENT
  Age: 61 Year
  Sex: Male

DRUGS (6)
  1. ARGATROBAN [Suspect]
     Dosage: UNK
     Route: 042
     Dates: start: 20100804, end: 20100810
  2. WARFARIN [Concomitant]
  3. AMIODARONE [Concomitant]
  4. AMLODIPINE [Concomitant]
  5. CARVEDILOL [Concomitant]
  6. DIGOXIN [Concomitant]

REACTIONS (1)
  - INTERNATIONAL NORMALISED RATIO INCREASED [None]
